FAERS Safety Report 4332368-9 (Version None)
Quarter: 2004Q2

REPORT INFORMATION
  Report Type: 
  Country: None (occurrence: None)
  Receive Date: 20040401
  Receipt Date: 20040322
  Transmission Date: 20050107
  Serious: Yes (Life-Threatening, Hospitalization, Disabling)
  Sender: FDA-Public Use
  Company Number: JP-JNJFOC-20040304428

PATIENT
  Age: 80 Year
  Sex: Female

DRUGS (6)
  1. RISPERDAL [Suspect]
     Indication: DELIRIUM
     Dosage: 1 MG, IN 1 DAY, ORAL
     Route: 048
     Dates: start: 20040105
  2. RISPERDAL [Suspect]
     Indication: SENILE PSYCHOSIS
     Dosage: 1 MG, IN 1 DAY, ORAL
     Route: 048
     Dates: start: 20040105
  3. ASPIRIN [Suspect]
     Indication: CEREBELLAR INFARCTION
     Dosage: 100 MG, IN 1 DAY, ORAL
     Route: 048
     Dates: start: 20040107
  4. BROTIZOLAM (BROTIZOLAM) UNSPECIFIED [Suspect]
     Indication: INSOMNIA
     Dosage: 0.25 MG, IN 1 DAY, ORAL
     Route: 048
     Dates: start: 20040105
  5. ^DI^ (ALL OTHER THERAPEUTIC PRODUCTS) [Concomitant]
  6. HALOPERIDOL [Concomitant]

REACTIONS (14)
  - APALLIC SYNDROME [None]
  - CEREBROVASCULAR DISORDER [None]
  - DEHYDRATION [None]
  - DELIRIUM [None]
  - DEPRESSED LEVEL OF CONSCIOUSNESS [None]
  - DIET REFUSAL [None]
  - DISORIENTATION [None]
  - DRUG INTERACTION [None]
  - FALL [None]
  - HEAD BANGING [None]
  - IMPAIRED SELF-CARE [None]
  - PERSECUTORY DELUSION [None]
  - PORIOMANIA [None]
  - SUBARACHNOID HAEMORRHAGE [None]
